FAERS Safety Report 12789882 (Version 1)
Quarter: 2016Q3

REPORT INFORMATION
  Report Type: Spontaneous
  Country: US (occurrence: US)
  Receive Date: 20160928
  Receipt Date: 20160928
  Transmission Date: 20161109
  Serious: No
  Sender: FDA-Public Use
  Company Number: US-KOWA-16US000013

PATIENT

DRUGS (7)
  1. LIVALO [Suspect]
     Active Substance: PITAVASTATIN CALCIUM
     Indication: BLOOD CHOLESTEROL INCREASED
     Dosage: 2 MG, UNK
     Dates: start: 2014
  2. LIVALO [Suspect]
     Active Substance: PITAVASTATIN CALCIUM
     Dosage: 2 MG, QW
     Dates: start: 201601, end: 20160107
  3. LIVALO [Suspect]
     Active Substance: PITAVASTATIN CALCIUM
     Dosage: 2 MG, QW
     Dates: end: 2015
  4. LEVOTHYROXINE. [Concomitant]
     Active Substance: LEVOTHYROXINE
     Indication: HYPOTHYROIDISM
     Dosage: 100 ?G, UNK
  5. DOXYCYCLINE. [Concomitant]
     Active Substance: DOXYCYCLINE
     Indication: LYME DISEASE
     Dosage: UNK
     Dates: start: 2015
  6. LIVALO [Suspect]
     Active Substance: PITAVASTATIN CALCIUM
     Dosage: 2 MG, UNK
  7. METOPROLOL TARTRATE. [Concomitant]
     Active Substance: METOPROLOL TARTRATE
     Indication: HYPERTENSION
     Dosage: 25 MG, QD

REACTIONS (8)
  - Malaise [Recovered/Resolved]
  - Myalgia [Recovered/Resolved]
  - Nausea [Recovered/Resolved]
  - Off label use [Unknown]
  - Muscle spasms [Recovered/Resolved]
  - Muscular weakness [Recovered/Resolved]
  - Headache [Recovered/Resolved]
  - Intentional product misuse [Unknown]

NARRATIVE: CASE EVENT DATE: 2014
